FAERS Safety Report 5829670-8 (Version None)
Quarter: 2008Q3

REPORT INFORMATION
  Report Type: 
  Country: None (occurrence: None)
  Receive Date: 20080729
  Receipt Date: 20080718
  Transmission Date: 20090109
  Serious: Yes (Other)
  Sender: FDA-Public Use
  Company Number: CHNY2008DE02841

PATIENT
  Sex: Male

DRUGS (2)
  1. NICOTINELL COATED GUM 2 MG MINT (NCH) (NICOTINE) CHEWABLE GUM [Suspect]
     Dosage: 600 X 2 MG GUMS PER MONTH, CHEWED
     Route: 048
  2. DRUG USED IN DIABETES [Concomitant]

REACTIONS (3)
  - BLOOD GLUCOSE INCREASED [None]
  - INCORRECT DOSE ADMINISTERED [None]
  - INTENTIONAL DRUG MISUSE [None]
